FAERS Safety Report 22142038 (Version 1)
Quarter: 2023Q1

REPORT INFORMATION
  Report Type: Spontaneous
  Country: CA (occurrence: CA)
  Receive Date: 20230327
  Receipt Date: 20230327
  Transmission Date: 20230418
  Serious: Yes (Other)
  Sender: FDA-Public Use
  Company Number: CA-PFIZER INC-202300122444

PATIENT
  Age: 65 Year
  Sex: Female

DRUGS (4)
  1. SULFASALAZINE [Suspect]
     Active Substance: SULFASALAZINE
     Dosage: 1 DF, DOSAGE INFO: UNKNOWN STATUS: DISCONTINUED
  2. METHOTREXATE [Suspect]
     Active Substance: METHOTREXATE
     Dosage: 1 DF, DOSAGE INFO: UNKNOWNSTATUS: DISCONTINUED
  3. MESALAMINE [Concomitant]
     Active Substance: MESALAMINE
     Dosage: UNK
  4. TREMFYA [Concomitant]
     Active Substance: GUSELKUMAB
     Dosage: UNK, LAST INJECTION WAS LAST WEEK

REACTIONS (3)
  - Uterine cancer [Unknown]
  - Vomiting [Unknown]
  - Diarrhoea [Unknown]
